FAERS Safety Report 5701909-9 (Version None)
Quarter: 2008Q2

REPORT INFORMATION
  Report Type: 
  Country: None (occurrence: None)
  Receive Date: 20080411
  Receipt Date: 20080402
  Transmission Date: 20081010
  Serious: Yes (Hospitalization)
  Sender: FDA-Public Use
  Company Number: PHHY2008JP04614

PATIENT
  Age: 53 Year
  Sex: Male

DRUGS (1)
  1. METOPROLOL TARTRATE [Suspect]
     Dosage: 20 MG/DAY
     Route: 048

REACTIONS (3)
  - AUTOIMMUNE THROMBOCYTOPENIA [None]
  - EOSINOPHILIA [None]
  - EOSINOPHILIC PNEUMONIA [None]
